FAERS Safety Report 24698778 (Version 1)
Quarter: 2024Q4

REPORT INFORMATION
  Report Type: Spontaneous
  Country: CN (occurrence: CN)
  Receive Date: 20241205
  Receipt Date: 20241205
  Transmission Date: 20250115
  Serious: Yes (Disabling, Other)
  Sender: Kenvue
  Company Number: CN-KENVUE-20241108623

PATIENT

DRUGS (2)
  1. CHILDRENS MOTRIN [Suspect]
     Active Substance: IBUPROFEN
     Indication: Body temperature increased
     Dosage: 10 MILLILITER, THRICE A DAY
     Route: 048
     Dates: start: 20241122, end: 20241123
  2. CEFPROZIL [Suspect]
     Active Substance: CEFPROZIL
     Indication: Inflammation
     Dosage: UNK
     Route: 048
     Dates: start: 20241122, end: 20241123

REACTIONS (2)
  - Off label use [Unknown]
  - Renal impairment [Recovering/Resolving]

NARRATIVE: CASE EVENT DATE: 20241122
